FAERS Safety Report 11428770 (Version 1)
Quarter: 2015Q3

REPORT INFORMATION
  Report Type: Spontaneous
  Country: US (occurrence: US)
  Receive Date: 20150828
  Receipt Date: 20150828
  Transmission Date: 20151125
  Serious: Yes (Other)
  Sender: FDA-Public Use
  Company Number: US-ASTRAZENECA-2015SE80901

PATIENT
  Age: 66 Year
  Sex: Male

DRUGS (3)
  1. OCTREOTIDE. [Concomitant]
     Active Substance: OCTREOTIDE
     Indication: METASTATIC CARCINOID TUMOUR
  2. EVEROLIMUS [Concomitant]
     Active Substance: EVEROLIMUS
     Indication: METASTATIC CARCINOID TUMOUR
  3. SAXAGLIPTIN [Suspect]
     Active Substance: SAXAGLIPTIN
     Indication: TYPE 2 DIABETES MELLITUS
     Route: 048

REACTIONS (3)
  - Disease progression [Unknown]
  - Drug-disease interaction [Unknown]
  - Serum serotonin increased [Recovered/Resolved]
